FAERS Safety Report 4586095-3 (Version None)
Quarter: 2005Q1

REPORT INFORMATION
  Report Type: 
  Country: None (occurrence: None)
  Receive Date: 20050125
  Receipt Date: 20041115
  Transmission Date: 20050727
  Serious: No
  Sender: FDA-Public Use
  Company Number: USA041081368

PATIENT
  Sex: Female

DRUGS (4)
  1. FORTEO [Suspect]
     Indication: OSTEOPOROSIS
     Dates: start: 20040601
  2. CELEBREX [Concomitant]
  3. ADVIL [Concomitant]
  4. FOSAMAX [Concomitant]

REACTIONS (5)
  - CHEST DISCOMFORT [None]
  - CORONARY ARTERY OCCLUSION [None]
  - FATIGUE [None]
  - FOOT FRACTURE [None]
  - HEART RATE INCREASED [None]
